FAERS Safety Report 6496351-X (Version None)
Quarter: 2009Q4

REPORT INFORMATION
  Report Type: 
  Country: None (occurrence: None)
  Receive Date: 20091214
  Receipt Date: 20091123
  Transmission Date: 20100525
  Serious: No
  Sender: FDA-Public Use
  Company Number: US-ABBOTT-09P-163-0584141-00

PATIENT
  Sex: Female

DRUGS (6)
  1. VICODIN ES [Suspect]
     Indication: PAIN
     Dosage: AS REQUIRED
     Route: 048
     Dates: start: 19970101
  2. AVINZA [Concomitant]
     Indication: PAIN
     Dates: start: 19970101
  3. BACLOFEN [Concomitant]
     Indication: MUSCLE RELAXANT THERAPY
     Dates: start: 19970101
  4. PAXIL [Concomitant]
     Indication: DRUG USE FOR UNKNOWN INDICATION
     Dates: start: 19990101
  5. ZOCOR [Concomitant]
     Indication: BLOOD CHOLESTEROL INCREASED
  6. VALIUM [Concomitant]
     Indication: INSOMNIA
     Dates: start: 19970101

REACTIONS (1)
  - PAIN [None]
